FAERS Safety Report 6297884-1 (Version None)
Quarter: 2009Q3

REPORT INFORMATION
  Report Type: 
  Country: None (occurrence: None)
  Receive Date: 20090804
  Receipt Date: 20090804
  Transmission Date: 20100115
  Serious: Yes (Life-Threatening, Hospitalization, Disabling, Other)
  Sender: FDA-Public Use
  Company Number: None

PATIENT
  Age: 40 Year
  Sex: Female
  Weight: 58.9676 kg

DRUGS (1)
  1. AVELOX [Suspect]
     Indication: SINUSITIS
     Dosage: 2 TIMES PER DAY-, I WAS HOSPITALIZED
     Dates: start: 20081220, end: 20081220

REACTIONS (7)
  - ACTIVITIES OF DAILY LIVING IMPAIRED [None]
  - ANXIETY [None]
  - DYSARTHRIA [None]
  - FEAR [None]
  - IMPAIRED DRIVING ABILITY [None]
  - NERVOUS SYSTEM DISORDER [None]
  - PRESYNCOPE [None]
